FAERS Safety Report 12314519 (Version 1)
Quarter: 2016Q2

REPORT INFORMATION
  Report Type: Spontaneous
  Country: US (occurrence: US)
  Receive Date: 20160428
  Receipt Date: 20160428
  Transmission Date: 20160815
  Serious: Yes (Other)
  Sender: FDA-Public Use
  Company Number: US-GLAXOSMITHKLINE-US2016GSK059272

PATIENT
  Age: 51 Year
  Sex: Female

DRUGS (16)
  1. TRINTELLIX [Suspect]
     Active Substance: VORTIOXETINE HYDROBROMIDE
     Indication: PRODUCT USED FOR UNKNOWN INDICATION
     Dosage: 20 MG, U
     Route: 048
     Dates: start: 2015
  2. LEVOTHYROXINE. [Concomitant]
     Active Substance: LEVOTHYROXINE
  3. OXYCODONE [Concomitant]
     Active Substance: OXYCODONE
  4. REQUIP [Suspect]
     Active Substance: ROPINIROLE HYDROCHLORIDE
     Indication: PARAESTHESIA
  5. ADDERALL [Suspect]
     Active Substance: AMPHETAMINE ASPARTATE\AMPHETAMINE SULFATE\DEXTROAMPHETAMINE SACCHARATE\DEXTROAMPHETAMINE SULFATE
     Indication: PRODUCT USED FOR UNKNOWN INDICATION
     Dosage: UNK, U
     Route: 048
     Dates: end: 201602
  6. ROPINIROLE. [Concomitant]
     Active Substance: ROPINIROLE
  7. SOLU-MEDROL [Concomitant]
     Active Substance: METHYLPREDNISOLONE SODIUM SUCCINATE
  8. REQUIP [Suspect]
     Active Substance: ROPINIROLE HYDROCHLORIDE
     Indication: PAIN IN EXTREMITY
  9. AMPYRA [Suspect]
     Active Substance: DALFAMPRIDINE
     Indication: GAIT DISTURBANCE
     Dosage: 10 MG, BID
     Route: 048
     Dates: start: 201504
  10. OXYBUTYNIN [Concomitant]
     Active Substance: OXYBUTYNIN
  11. COPAXONE [Concomitant]
     Active Substance: GLATIRAMER ACETATE
  12. PROTONIX [Concomitant]
     Active Substance: PANTOPRAZOLE SODIUM
  13. PROVIGIL [Concomitant]
     Active Substance: MODAFINIL
  14. TRAZODONE [Suspect]
     Active Substance: TRAZODONE HYDROCHLORIDE
     Indication: INSOMNIA
     Dosage: 100 MG, U
     Dates: start: 1990
  15. ATIVAN [Concomitant]
     Active Substance: LORAZEPAM
  16. REQUIP [Suspect]
     Active Substance: ROPINIROLE HYDROCHLORIDE
     Indication: HYPOAESTHESIA
     Dosage: 1 MG, U
     Route: 048

REACTIONS (17)
  - Vomiting [Recovering/Resolving]
  - Hypoaesthesia [Recovering/Resolving]
  - Paraesthesia [Recovering/Resolving]
  - Nausea [Recovering/Resolving]
  - Muscle twitching [Recovered/Resolved]
  - Drug interaction [Unknown]
  - Gastrooesophageal reflux disease [Unknown]
  - Middle insomnia [Recovering/Resolving]
  - Condition aggravated [Recovering/Resolving]
  - Abdominal pain [Not Recovered/Not Resolved]
  - Insomnia [Recovering/Resolving]
  - Weight decreased [Not Recovered/Not Resolved]
  - Dyspepsia [Not Recovered/Not Resolved]
  - Choking [Not Recovered/Not Resolved]
  - Eating disorder [Not Recovered/Not Resolved]
  - Pain in extremity [Recovering/Resolving]
  - Off label use [Not Recovered/Not Resolved]

NARRATIVE: CASE EVENT DATE: 201507
